FAERS Safety Report 8117810-X (Version None)
Quarter: 2012Q1

REPORT INFORMATION
  Report Type: 
  Country: None (occurrence: None)
  Receive Date: 20120207
  Receipt Date: 20120131
  Transmission Date: 20120608
  Serious: Yes (Other)
  Sender: FDA-Public Use
  Company Number: TR-SANOFI-AVENTIS-2010SA048223

PATIENT
  Age: 38 Year
  Sex: Male
  Weight: 55 kg

DRUGS (4)
  1. LANTUS [Suspect]
     Indication: TYPE 1 DIABETES MELLITUS
     Route: 058
     Dates: start: 20090101
  2. SOLOSTAR [Suspect]
     Indication: DEVICE THERAPY
     Dates: start: 20090101
  3. NOVORAPID [Concomitant]
     Dosage: 3-5IU
     Route: 058
     Dates: start: 20090101
  4. LEVOTHYROXINE SODIUM [Concomitant]
     Indication: HYPOTHYROIDISM
     Route: 048
     Dates: start: 20090101

REACTIONS (2)
  - BLOOD GLUCOSE FLUCTUATION [None]
  - SPERM CONCENTRATION DECREASED [None]
